FAERS Safety Report 7156193-9 (Version None)
Quarter: 2010Q4

REPORT INFORMATION
  Report Type: 
  Country: None (occurrence: None)
  Receive Date: 20101123
  Receipt Date: 20101006
  Transmission Date: 20110411
  Serious: Yes (Hospitalization)
  Sender: FDA-Public Use
  Company Number: 018357

PATIENT
  Sex: Female
  Weight: 125.6464 kg

DRUGS (11)
  1. CIMZIA [Suspect]
     Indication: CROHN'S DISEASE
     Dosage: SUBCUTANEOUS, 400 MG 1X/4 WEEKS SUBCUTANEOUS
     Route: 058
     Dates: start: 20090919, end: 20100208
  2. CIMZIA [Suspect]
     Indication: CROHN'S DISEASE
     Dosage: SUBCUTANEOUS, 400 MG 1X/4 WEEKS SUBCUTANEOUS
     Route: 058
     Dates: start: 20100701
  3. COLAZAL [Concomitant]
  4. MERCAPTOPURINE [Concomitant]
  5. LANTUS [Concomitant]
  6. NOVOLOG [Concomitant]
  7. ZOLOFT [Concomitant]
  8. LOTREL [Concomitant]
  9. LOVASTATIN [Concomitant]
  10. LEVOTHYROXINE [Concomitant]
  11. JANUVIA [Concomitant]

REACTIONS (4)
  - CHILLS [None]
  - CROHN'S DISEASE [None]
  - FISTULA [None]
  - PYREXIA [None]
